FAERS Safety Report 10912380 (Version 9)
Quarter: 2015Q3

REPORT INFORMATION
  Report Type: Report from Study
  Country: DE (occurrence: DE)
  Receive Date: 20150313
  Receipt Date: 20150831
  Transmission Date: 20151125
  Serious: Yes (Hospitalization)
  Sender: FDA-Public Use
  Company Number: DE-B.I. PHARMACEUTICALS,INC./RIDGEFIELD-2015-BI-11000BI

PATIENT
  Age: 64 Year
  Sex: Female
  Weight: 57 kg

DRUGS (14)
  1. FENTANYL. [Concomitant]
     Active Substance: FENTANYL
     Indication: TUMOUR PAIN
     Dosage: 33.3333 MCG
     Route: 062
     Dates: start: 20150306
  2. BIBF 1120 [Suspect]
     Active Substance: NINTEDANIB
     Indication: COLON CANCER
     Dosage: 0 MG
     Route: 048
     Dates: start: 20150129, end: 20150227
  3. VIGANTOLELTEN [Concomitant]
     Indication: PROPHYLAXIS
     Dosage: 1000 U
     Route: 048
  4. DEXAMETHASONE. [Concomitant]
     Active Substance: DEXAMETHASONE
     Indication: NAUSEA
     Dosage: 4 MG
     Route: 048
     Dates: start: 20150305
  5. BIBF 1120 [Suspect]
     Active Substance: NINTEDANIB
     Dosage: 200 MG
     Route: 048
     Dates: start: 20150305, end: 20150306
  6. PANTOZOL [Concomitant]
     Active Substance: PANTOPRAZOLE SODIUM
     Indication: PROPHYLAXIS
  7. SELEN [Concomitant]
     Active Substance: SELENIUM
     Indication: PROPHYLAXIS
     Dosage: 100 MCG
     Route: 048
     Dates: start: 20150120
  8. SAB SIMPLEX [Concomitant]
     Indication: FLATULENCE
     Dosage: 30 ML
     Route: 048
     Dates: start: 20150305
  9. PANTOZOL [Concomitant]
     Active Substance: PANTOPRAZOLE SODIUM
     Indication: GASTRITIS
     Dosage: 40 MG
     Route: 048
     Dates: start: 20150306
  10. METOCLOPRAMID [Concomitant]
     Active Substance: METOCLOPRAMIDE
     Indication: NAUSEA
     Dosage: 30 MG
     Route: 048
     Dates: start: 20150120
  11. NOVALGIN [Concomitant]
     Active Substance: METAMIZOLE SODIUM
     Indication: TUMOUR PAIN
     Dosage: 90 ANZ
     Route: 048
  12. VOMEX [Concomitant]
     Active Substance: DIMENHYDRINATE
     Indication: NAUSEA
     Dosage: 2 ANZ
     Route: 048
     Dates: start: 20150307
  13. COLIBIOGEN [Concomitant]
     Indication: PROPHYLAXIS
     Dosage: 5 ML
     Route: 048
  14. CLEXANE [Concomitant]
     Active Substance: ENOXAPARIN SODIUM
     Indication: THROMBOSIS PROPHYLAXIS
     Dosage: 0.4 ML
     Route: 058
     Dates: start: 20150302

REACTIONS (5)
  - Constipation [Recovered/Resolved]
  - Urinary retention [Recovered/Resolved]
  - Urinary tract infection [Recovered/Resolved]
  - Vomiting [Recovered/Resolved]
  - Dyspnoea [Recovered/Resolved]

NARRATIVE: CASE EVENT DATE: 20150216
